FAERS Safety Report 9380488 (Version 2)
Quarter: 2013Q3

REPORT INFORMATION
  Report Type: Spontaneous
  Country: US (occurrence: US)
  Receive Date: 20130702
  Receipt Date: 20130805
  Transmission Date: 20140515
  Serious: No
  Sender: FDA-Public Use
  Company Number: US-009507513-1307USA000537

PATIENT
  Age: 85 Year
  Sex: Female
  Weight: 47.17 kg

DRUGS (15)
  1. MIRALAX [Suspect]
     Indication: PRODUCT USED FOR UNKNOWN INDICATION
     Dosage: 8.5 G, QPM
     Route: 048
     Dates: start: 20130610, end: 20130612
  2. ALENDRONATE SODIUM [Concomitant]
     Indication: PRODUCT USED FOR UNKNOWN INDICATION
     Dosage: UNK, UNKNOWN
  3. METOPROLOL [Concomitant]
     Indication: MITRAL VALVE PROLAPSE
     Dosage: UNK, UNKNOWN
  4. NORPACE [Concomitant]
     Indication: ARRHYTHMIA
     Dosage: UNK, UNKNOWN
  5. PREDNISONE [Concomitant]
     Indication: TEMPORAL ARTERITIS
     Dosage: UNK, UNKNOWN
  6. PREMARIN [Concomitant]
     Indication: OESTROGEN REPLACEMENT THERAPY
     Dosage: UNK, UNKNOWN
  7. SYNTHROID [Concomitant]
     Indication: PRODUCT USED FOR UNKNOWN INDICATION
     Dosage: UNK, UNKNOWN
  8. AZOPT [Concomitant]
     Indication: GLAUCOMA
     Dosage: UNK, UNKNOWN
  9. COMBIGAN [Concomitant]
     Indication: GLAUCOMA
     Dosage: UNK, UNKNOWN
  10. LATANOPROST [Concomitant]
     Indication: GLAUCOMA
     Dosage: UNK, UNKNOWN
  11. XANAX [Concomitant]
     Indication: ANXIETY
     Dosage: UNK, UNKNOWN
  12. CENTRUM SILVER [Concomitant]
     Indication: PRODUCT USED FOR UNKNOWN INDICATION
     Dosage: UNK, UNKNOWN
  13. VITAMIN B COMPLEX [Concomitant]
     Indication: PRODUCT USED FOR UNKNOWN INDICATION
     Dosage: UNK, UNKNOWN
  14. CHOLECALCIFEROL [Concomitant]
     Indication: PRODUCT USED FOR UNKNOWN INDICATION
     Dosage: UNK, UNKNOWN
  15. ANTACID (CALCIUM CARBONATE) [Concomitant]
     Indication: PRODUCT USED FOR UNKNOWN INDICATION
     Dosage: UNK, UNKNOWN

REACTIONS (8)
  - Abdominal discomfort [Recovered/Resolved]
  - Abdominal pain upper [Recovered/Resolved]
  - Oral discomfort [Recovered/Resolved]
  - Gastrointestinal sounds abnormal [Recovered/Resolved]
  - Constipation [Recovered/Resolved]
  - Diarrhoea [Recovered/Resolved]
  - Underdose [Recovered/Resolved]
  - Expired drug administered [Recovered/Resolved]
